FAERS Safety Report 4446606-5 (Version None)
Quarter: 2004Q3

REPORT INFORMATION
  Report Type: 
  Country: None (occurrence: None)
  Receive Date: 20040910
  Receipt Date: 20040902
  Transmission Date: 20050211
  Serious: Yes (Hospitalization)
  Sender: FDA-Public Use
  Company Number: FR-MERCK-0409FRA00003

PATIENT
  Age: 81 Year
  Sex: Male

DRUGS (8)
  1. ACETAMINOPHEN [Concomitant]
     Route: 065
  2. CLOPIDOGREL BISULFATE [Suspect]
     Route: 048
     Dates: start: 20040515, end: 20040801
  3. PERIACTIN [Suspect]
     Route: 048
     Dates: start: 20040729, end: 20040812
  4. DIETHYLSTILBESTROL [Suspect]
     Indication: PROSTATE CANCER
     Route: 048
     Dates: start: 20040704
  5. ESOMEPRAZOLE MAGNESIUM [Suspect]
     Route: 048
     Dates: end: 20040812
  6. FUROSEMIDE AND SPIRONOLACTONE [Suspect]
     Route: 048
     Dates: end: 20040728
  7. ORNITHINE KETOGLUTARATE [Concomitant]
     Route: 065
  8. PREDNISONE [Suspect]
     Route: 048

REACTIONS (2)
  - ANAEMIA [None]
  - THROMBOCYTOPENIC PURPURA [None]
